FAERS Safety Report 8811772 (Version 1)
Quarter: 2012Q4

REPORT INFORMATION
  Report Type: 
  Country: BR (occurrence: BR)
  Receive Date: 20120927
  Receipt Date: 20120927
  Transmission Date: 20130627
  Serious: Yes (Other)
  Sender: FDA-Public Use
  Company Number: BR-ASTRAZENECA-2012SE18616

PATIENT
  Age: 42 Year
  Sex: Female
  Weight: 87 kg

DRUGS (4)
  1. NEXIUM [Suspect]
     Indication: ABDOMINAL PAIN UPPER
     Route: 048
     Dates: start: 201203
  2. NEXIUM [Suspect]
     Indication: ABDOMINAL PAIN UPPER
     Route: 048
  3. NEXIUM [Suspect]
     Indication: ABDOMINAL PAIN UPPER
     Route: 048
     Dates: end: 201204
  4. NOLVADEX D [Suspect]
     Indication: BREAST CANCER
     Route: 048
     Dates: start: 20120317

REACTIONS (7)
  - Ligament rupture [Not Recovered/Not Resolved]
  - Ligament sprain [Recovering/Resolving]
  - Weight increased [Not Recovered/Not Resolved]
  - Fluid retention [Not Recovered/Not Resolved]
  - Myalgia [Recovering/Resolving]
  - Abdominal pain upper [Recovering/Resolving]
  - Drug ineffective [Unknown]
